FAERS Safety Report 8375384 (Version 2)
Quarter: 2012Q4

REPORT INFORMATION
  Report Type: 
  Country: JP (occurrence: JP)
  Receive Date: 20120131
  Receipt Date: 20121226
  Transmission Date: 20130627
  Serious: Yes (Other)
  Sender: FDA-Public Use
  Company Number: JP-PFIZER INC-2011277144

PATIENT
  Age: 68 Year
  Sex: Male

DRUGS (2)
  1. CAMPTO [Suspect]
     Indication: NEUROENDOCRINE CARCINOMA
     Dosage: UNK
     Route: 041
  2. CARBOPLATIN [Suspect]
     Indication: NEUROENDOCRINE CARCINOMA
     Dosage: UNK
     Route: 041

REACTIONS (1)
  - Interstitial lung disease [Unknown]
